FAERS Safety Report 21108454 (Version 10)
Quarter: 2025Q1

REPORT INFORMATION
  Report Type: Report from Study
  Country: DE (occurrence: DE)
  Receive Date: 20220721
  Receipt Date: 20250213
  Transmission Date: 20250408
  Serious: No
  Sender: ROCHE
  Company Number: DE-ROCHE-3143846

PATIENT
  Age: 57 Year
  Sex: Female

DRUGS (8)
  1. OCREVUS [Suspect]
     Active Substance: OCRELIZUMAB
     Indication: Relapsing-remitting multiple sclerosis
     Route: 042
  2. OCREVUS [Suspect]
     Active Substance: OCRELIZUMAB
     Route: 042
     Dates: start: 20211227
  3. CANDESARTAN [Concomitant]
     Active Substance: CANDESARTAN
  4. DISTIGMINE BROMIDE [Concomitant]
     Active Substance: DISTIGMINE BROMIDE
  5. TIZANIDINE [Concomitant]
     Active Substance: TIZANIDINE
  6. VITAMIN D3 [Concomitant]
     Active Substance: CHOLECALCIFEROL
  7. COMIRNATY [Concomitant]
     Dates: start: 202105
  8. ACETAMINOPHEN [Concomitant]
     Active Substance: ACETAMINOPHEN

REACTIONS (10)
  - COVID-19 [Recovered/Resolved]
  - Asthenia [Recovered/Resolved]
  - Ageusia [Recovered/Resolved]
  - Parosmia [Recovered/Resolved]
  - Ankle fracture [Recovered/Resolved]
  - Ligament rupture [Recovered/Resolved]
  - Constipation [Recovered/Resolved]
  - Migraine [Recovered/Resolved]
  - Muscle spasticity [Not Recovered/Not Resolved]
  - COVID-19 [Recovered/Resolved]

NARRATIVE: CASE EVENT DATE: 20220701
